FAERS Safety Report 4299703-1 (Version None)
Quarter: 2004Q1

REPORT INFORMATION
  Report Type: 
  Country: None (occurrence: None)
  Receive Date: 20040219
  Receipt Date: 20040202
  Transmission Date: 20041129
  Serious: Yes (Hospitalization)
  Sender: FDA-Public Use
  Company Number: US-BRISTOL-MYERS SQUIBB COMPANY-12494035

PATIENT
  Age: 40 Year
  Sex: Male

DRUGS (13)
  1. CETUXIMAB [Suspect]
     Indication: COLORECTAL CANCER METASTATIC
     Dosage: LOADING DOSE WAS GIVEN. DOSAGE REDUCED DUE TO EVENT.
     Route: 042
     Dates: start: 20040123, end: 20040123
  2. IRINOTECAN [Suspect]
     Indication: COLORECTAL CANCER METASTATIC
     Dosage: INITIAL DOSE WAS GIVEN.  DOSAGE REDUCED DUE TO EVENT.
     Route: 042
     Dates: start: 20040123, end: 20040123
  3. DECADRON [Concomitant]
     Indication: PREMEDICATION
     Dosage: ADMINISTERED PRIOR TO EACH CHEMOTHERAPY AS PRE-MEDICATION.
     Route: 048
     Dates: start: 20040122
  4. OXYCONTIN [Concomitant]
     Indication: PAIN PROPHYLAXIS
     Dosage: ADMINISTERED EVERY 12 HOURS.
     Route: 048
     Dates: start: 20030825, end: 20040205
  5. OXYCODONE HCL [Concomitant]
     Indication: PAIN PROPHYLAXIS
     Dosage: INTIALLY GIVEN 15 MG/4HRS AS NEEDED-30 JAN 2004 INCREASED TO 20 MG EVERY 4 HRS AS NEEDED
     Route: 048
     Dates: start: 20030825
  6. VALTREX [Concomitant]
     Indication: HERPES ZOSTER
     Route: 048
     Dates: start: 20040121, end: 20040128
  7. COMPAZINE [Concomitant]
     Indication: NAUSEA
     Route: 048
  8. LOMOTIL [Concomitant]
     Indication: DIARRHOEA
     Dosage: ADMINISTERED: 2 TABLETS PRN
     Route: 048
     Dates: start: 20040130
  9. IMODIUM [Concomitant]
     Indication: DIARRHOEA
     Dosage: ADMINISTERED AS: 1 TO 2 TABLETS PRN
     Route: 048
     Dates: start: 20040130
  10. ATROPINE [Concomitant]
     Indication: ABDOMINAL PAIN
     Route: 042
     Dates: start: 20040123, end: 20040123
  11. ATIVAN [Concomitant]
     Indication: ABDOMINAL PAIN
     Route: 042
     Dates: start: 20040123, end: 20040123
  12. CLEOCIN [Concomitant]
     Indication: DERMATITIS ACNEIFORM
     Dosage: APPLIED TO FACE AS DIRECTED.
     Dates: start: 20040130
  13. LEUKINE [Concomitant]
     Indication: NEUTROPENIA
     Dosage: GIVEN ONE TIME
     Route: 058
     Dates: start: 20040130

REACTIONS (2)
  - ENTERITIS [None]
  - FEBRILE NEUTROPENIA [None]
